FAERS Safety Report 6156981-1 (Version None)
Quarter: 2009Q2

REPORT INFORMATION
  Report Type: 
  Country: None (occurrence: None)
  Receive Date: 20090416
  Receipt Date: 20090325
  Transmission Date: 20091009
  Serious: Yes (Hospitalization)
  Sender: FDA-Public Use
  Company Number: US-ABBOTT-09P-163-0566868-00

PATIENT
  Sex: Female

DRUGS (14)
  1. VICODIN [Suspect]
     Indication: DRUG USE FOR UNKNOWN INDICATION
     Dosage: 5/500 AS NEEDED
     Route: 065
  2. LEXAPRO [Suspect]
     Indication: DRUG USE FOR UNKNOWN INDICATION
     Route: 065
  3. IBUPROFEN TABLETS [Suspect]
     Indication: DRUG USE FOR UNKNOWN INDICATION
     Route: 065
  4. DESVENLAFAXINE SUCCINATE MONOHYDRATE (BLINDED) [Suspect]
     Indication: MENOPAUSAL SYMPTOMS
     Route: 048
     Dates: start: 20081109, end: 20081224
  5. DESVENLAFAXINE SUCCINATE MONOHYDRATE (BLINDED) [Suspect]
     Indication: HOT FLUSH
  6. ABILIFY [Suspect]
     Indication: DRUG USE FOR UNKNOWN INDICATION
     Route: 065
  7. AMBIEN [Suspect]
     Indication: DRUG USE FOR UNKNOWN INDICATION
     Route: 048
  8. CLONAZEPAM [Suspect]
     Indication: DRUG USE FOR UNKNOWN INDICATION
     Route: 065
  9. FLUTICASONE [Suspect]
     Indication: DRUG USE FOR UNKNOWN INDICATION
     Dosage: SPRAYS
     Route: 065
  10. LORATADINE [Suspect]
     Indication: DRUG USE FOR UNKNOWN INDICATION
     Route: 065
  11. LYRICA [Suspect]
     Indication: DRUG USE FOR UNKNOWN INDICATION
     Route: 048
  12. METHOCARBAMOL [Suspect]
     Indication: DRUG USE FOR UNKNOWN INDICATION
     Route: 065
  13. VIVELLE [Suspect]
     Indication: DRUG USE FOR UNKNOWN INDICATION
     Route: 062
  14. ZESTORETIC [Suspect]
     Indication: DRUG USE FOR UNKNOWN INDICATION
     Dosage: 20/12.5 DAILY
     Route: 065

REACTIONS (8)
  - ASTHENIA [None]
  - CONDITION AGGRAVATED [None]
  - DYSARTHRIA [None]
  - HEADACHE [None]
  - HYPERTENSION [None]
  - HYPOKALAEMIA [None]
  - MENTAL STATUS CHANGES [None]
  - POLYMEDICATION [None]
